FAERS Safety Report 8055736-0 (Version None)
Quarter: 2012Q1

REPORT INFORMATION
  Report Type: 
  Country: None (occurrence: None)
  Receive Date: 20120112
  Receipt Date: 20111228
  Transmission Date: 20120608
  Serious: Yes (Other)
  Sender: FDA-Public Use
  Company Number: FK201103127

PATIENT
  Age: 72 Year
  Sex: Female

DRUGS (4)
  1. ZOLEDRONIC ACID [Suspect]
     Indication: PRODUCT USED FOR UNKNOWN INDICATION
     Dosage: 4 MG, MONTHLY, INTRAVENOUS (NOT OTHERWISE SPECIFIED)
     Route: 042
     Dates: start: 20060301
  2. BORTEZOMIB [Concomitant]
  3. PAMIDRONATE DISODIUM [Suspect]
     Indication: PRODUCT USED FOR UNKNOWN INDICATION
     Dosage: 90 MG INTRAVENOUS (NOT OTHERWISE SPECIFIED) 90 MG, STARTED MONTHLY TREATMENTS, INTRAVENOUS (NOT OTHE
     Route: 042
     Dates: start: 20041001
  4. PAMIDRONATE DISODIUM [Suspect]
     Indication: PRODUCT USED FOR UNKNOWN INDICATION
     Dosage: 90 MG INTRAVENOUS (NOT OTHERWISE SPECIFIED) 90 MG, STARTED MONTHLY TREATMENTS, INTRAVENOUS (NOT OTHE
     Route: 042
     Dates: start: 20040701

REACTIONS (2)
  - IMPAIRED HEALING [None]
  - FOOT FRACTURE [None]
